FAERS Safety Report 6588725-3 (Version None)
Quarter: 2010Q1

REPORT INFORMATION
  Report Type: 
  Country: None (occurrence: None)
  Receive Date: 20100218
  Receipt Date: 20100209
  Transmission Date: 20100710
  Serious: Yes (Other)
  Sender: FDA-Public Use
  Company Number: AU-JNJFOC-20081201428

PATIENT
  Sex: Male

DRUGS (2)
  1. CONCERTA [Suspect]
     Indication: TRISOMY 21
     Route: 048
  2. MOVICOL [Concomitant]
     Indication: CONSTIPATION
     Dosage: 2 SACHETS DAILY
     Route: 065

REACTIONS (4)
  - AUTISM [None]
  - DRUG INEFFECTIVE FOR UNAPPROVED INDICATION [None]
  - OFF LABEL USE [None]
  - THERAPEUTIC RESPONSE DECREASED [None]
